FAERS Safety Report 18751727 (Version 2)
Quarter: 2021Q1

REPORT INFORMATION
  Report Type: Report from Study
  Country: US (occurrence: US)
  Receive Date: 20210118
  Receipt Date: 20210222
  Transmission Date: 20210419
  Serious: Yes (Other)
  Sender: FDA-Public Use
  Company Number: US-TAKEDA-US202011149

PATIENT
  Sex: Female

DRUGS (1)
  1. HUMAN IMMUNOGLOBULIN; HYALURONIDASE [Suspect]
     Active Substance: HUMAN IMMUNOGLOBULIN G\HYALURONIDASE RECOMBINANT HUMAN
     Indication: IMMUNODEFICIENCY COMMON VARIABLE
     Route: 065

REACTIONS (8)
  - Clavicle fracture [Unknown]
  - Nervousness [Unknown]
  - Spinal disorder [Unknown]
  - Foot fracture [Unknown]
  - Diabetes mellitus [Unknown]
  - Pain [Unknown]
  - Road traffic accident [Unknown]
  - Accident at home [Unknown]
